FAERS Safety Report 17644065 (Version 7)
Quarter: 2020Q4

REPORT INFORMATION
  Report Type: Report from Study
  Country: US (occurrence: US)
  Receive Date: 20200408
  Receipt Date: 20201119
  Transmission Date: 20210113
  Serious: Yes (Other)
  Sender: FDA-Public Use
  Company Number: NVSC2020US091078

PATIENT
  Sex: Female

DRUGS (1)
  1. COSENTYX [Suspect]
     Active Substance: SECUKINUMAB
     Indication: PSORIASIS
     Dosage: 300 MG, QMO
     Route: 058

REACTIONS (6)
  - COVID-19 [Unknown]
  - Dermatitis contact [Unknown]
  - Psoriasis [Unknown]
  - Pigmentation disorder [Unknown]
  - Viral infection [Unknown]
  - Malaise [Unknown]
